FAERS Safety Report 5189214-3 (Version None)
Quarter: 2006Q4

REPORT INFORMATION
  Report Type: 
  Country: None (occurrence: None)
  Receive Date: 20061215
  Receipt Date: 20061204
  Transmission Date: 20070319
  Serious: Yes (Hospitalization, Other)
  Sender: FDA-Public Use
  Company Number: 2006129730

PATIENT
  Age: 47 Year
  Sex: Male
  Weight: 86.1834 kg

DRUGS (2)
  1. DILANTIN KAPSEAL [Suspect]
     Indication: CONVULSION
     Dosage: 300 MG (100 MG, 3 IN 1 D), ORAL
     Route: 048
     Dates: start: 20061012, end: 20061019
  2. LIPITOR [Suspect]
     Indication: HYPERLIPIDAEMIA
     Dosage: 40 MG (10 MG, 4 IN 1 D), ORAL
     Route: 048
     Dates: start: 20010101, end: 20060101

REACTIONS (4)
  - GRAND MAL CONVULSION [None]
  - PARTIAL SEIZURES [None]
  - RASH GENERALISED [None]
  - RHABDOMYOLYSIS [None]
